FAERS Safety Report 8933730 (Version 1)
Quarter: 2012Q4

REPORT INFORMATION
  Report Type: 
  Country: DE (occurrence: DE)
  Receive Date: 20121129
  Receipt Date: 20121129
  Transmission Date: 20130627
  Serious: Yes (Other)
  Sender: FDA-Public Use
  Company Number: DE-ROCHE-1160640

PATIENT

DRUGS (5)
  1. MABTHERA [Suspect]
     Indication: MANTLE CELL LYMPHOMA
     Route: 065
  2. CARMUSTINE [Concomitant]
     Indication: MANTLE CELL LYMPHOMA
     Route: 065
  3. ETOPOSIDE [Concomitant]
     Indication: MANTLE CELL LYMPHOMA
     Route: 065
  4. CYTARABINE [Concomitant]
     Indication: MANTLE CELL LYMPHOMA
     Route: 065
  5. MELPHALAN [Concomitant]
     Indication: MANTLE CELL LYMPHOMA
     Route: 065

REACTIONS (2)
  - Mucosal inflammation [Unknown]
  - Febrile neutropenia [Unknown]
